FAERS Safety Report 4840496-4 (Version None)
Quarter: 2005Q4

REPORT INFORMATION
  Report Type: 
  Country: None (occurrence: None)
  Receive Date: 20051130
  Receipt Date: 20050823
  Transmission Date: 20060501
  Serious: No
  Sender: FDA-Public Use
  Company Number: US-BRISTOL-MYERS SQUIBB COMPANY-13087440

PATIENT
  Age: 61 Year
  Sex: Female
  Weight: 86 kg

DRUGS (8)
  1. ERBITUX [Suspect]
     Indication: COLON CANCER
     Route: 042
  2. IRINOTECAN HCL [Concomitant]
     Indication: COLON CANCER
  3. PEPCID [Concomitant]
     Indication: PREMEDICATION
     Route: 042
  4. TYLENOL [Concomitant]
     Indication: PREMEDICATION
  5. LISINOPRIL [Concomitant]
  6. COUMADIN [Concomitant]
  7. OPIUM TINCTURE [Concomitant]
  8. IMODIUM [Concomitant]

REACTIONS (3)
  - DRY EYE [None]
  - OCULAR HYPERAEMIA [None]
  - SKIN DISCOLOURATION [None]
